FAERS Safety Report 4915977-5 (Version None)
Quarter: 2006Q1

REPORT INFORMATION
  Report Type: 
  Country: None (occurrence: None)
  Receive Date: 20060214
  Receipt Date: 20060126
  Transmission Date: 20060701
  Serious: Yes (Death, Other)
  Sender: FDA-Public Use
  Company Number: USA0509109346

PATIENT
  Age: 73 Year
  Sex: Female

DRUGS (4)
  1. HUMULIN(HUMAN INSULIN (RDNA ORIGIN) REGULAR UNKNOWN FORMULATION) UNKNO [Suspect]
     Indication: DIABETES MELLITUS INSULIN-DEPENDENT
     Dates: start: 19880101, end: 19910101
  2. INSULIN [Suspect]
     Indication: DIABETES MELLITUS INSULIN-DEPENDENT
     Dosage: SEE IMAGE
     Dates: start: 19330101, end: 19880101
  3. INSULIN [Suspect]
     Indication: DIABETES MELLITUS INSULIN-DEPENDENT
     Dosage: SEE IMAGE
     Dates: start: 20020501, end: 20021216
  4. INSULIN [Suspect]
     Indication: DIABETES MELLITUS INSULIN-DEPENDENT
     Dates: start: 19910101, end: 20020101

REACTIONS (5)
  - CARDIAC DISORDER [None]
  - CEREBROVASCULAR ACCIDENT [None]
  - DIABETIC COMPLICATION [None]
  - FEELING ABNORMAL [None]
  - SEPSIS [None]
